FAERS Safety Report 5089662-6 (Version None)
Quarter: 2006Q3

REPORT INFORMATION
  Report Type: 
  Country: None (occurrence: None)
  Receive Date: 20060731
  Receipt Date: 20060519
  Transmission Date: 20061208
  Serious: Yes (Hospitalization)
  Sender: FDA-Public Use
  Company Number: US200604004227

PATIENT
  Age: 82 Year
  Sex: Female

DRUGS (2)
  1. FORTEO [Suspect]
     Indication: OSTEOPOROSIS
     Dates: start: 20060302, end: 20060401
  2. FORTEO PEN, DISPOSABLE [Concomitant]

REACTIONS (3)
  - HEADACHE [None]
  - NASAL CONGESTION [None]
  - PNEUMONIA [None]
